FAERS Safety Report 25577752 (Version 1)
Quarter: 2025Q3

REPORT INFORMATION
  Report Type: Spontaneous
  Country: US (occurrence: US)
  Receive Date: 20250718
  Receipt Date: 20250718
  Transmission Date: 20251021
  Serious: No
  Sender: NOVO NORDISK
  Company Number: US-NOVOPROD-1320533

PATIENT
  Age: 49 Year
  Sex: Female

DRUGS (1)
  1. RYBELSUS [Suspect]
     Active Substance: SEMAGLUTIDE
     Indication: Glucose tolerance impaired
     Route: 048
     Dates: start: 202110, end: 202401

REACTIONS (2)
  - Weight increased [Unknown]
  - Product use in unapproved indication [Unknown]

NARRATIVE: CASE EVENT DATE: 20240201
